FAERS Safety Report 17098683 (Version 1)
Quarter: 2019Q4

REPORT INFORMATION
  Report Type: Spontaneous
  Country: PK (occurrence: PK)
  Receive Date: 20191129
  Receipt Date: 20191129
  Transmission Date: 20200122
  Serious: Yes (Hospitalization, Disabling)
  Sender: FDA-Public Use
  Company Number: None

PATIENT
  Age: 22 Year
  Sex: Male
  Weight: 50 kg

DRUGS (1)
  1. DIOVAN [Suspect]
     Active Substance: VALSARTAN
     Indication: ESSENTIAL HYPERTENSION
     Dates: start: 20180401, end: 20190913

REACTIONS (7)
  - Anxiety [None]
  - Essential hypertension [None]
  - Dysphagia [None]
  - Depression [None]
  - Paranasal sinus hyposecretion [None]
  - Weight decreased [None]
  - Ear congestion [None]

NARRATIVE: CASE EVENT DATE: 20190416
